FAERS Safety Report 9684611 (Version 3)
Quarter: 2013Q4

REPORT INFORMATION
  Report Type: Report from Study
  Country: TR (occurrence: TR)
  Receive Date: 20131112
  Receipt Date: 20131120
  Transmission Date: 20140711
  Serious: Yes (Hospitalization)
  Sender: FDA-Public Use
  Company Number: TR-ROCHE-1214568

PATIENT
  Age: 60 Year
  Sex: Female

DRUGS (3)
  1. XELODA [Suspect]
     Indication: GASTRIC CANCER
     Route: 048
     Dates: start: 20110107, end: 201303
  2. XELODA [Suspect]
     Route: 048
     Dates: start: 20120129
  3. XELODA [Suspect]
     Route: 048
     Dates: start: 20120322

REACTIONS (5)
  - Full blood count decreased [Recovered/Resolved]
  - Blood calcium decreased [Not Recovered/Not Resolved]
  - Full blood count decreased [Recovered/Resolved]
  - Nausea [Not Recovered/Not Resolved]
  - Vomiting [Not Recovered/Not Resolved]
